FAERS Safety Report 9726627 (Version 1)
Quarter: 2013Q4

REPORT INFORMATION
  Report Type: Spontaneous
  Country: GB (occurrence: GB)
  Receive Date: 20131203
  Receipt Date: 20131203
  Transmission Date: 20140711
  Serious: Yes (Other)
  Sender: FDA-Public Use
  Company Number: GB-BAYER-2013-144998

PATIENT
  Age: 26 Year
  Sex: Female
  Weight: 54 kg

DRUGS (1)
  1. MIRENA [Suspect]
     Indication: CONTRACEPTION
     Dosage: UNK
     Route: 015
     Dates: start: 201204

REACTIONS (6)
  - Contact lens intolerance [Unknown]
  - Fatigue [Unknown]
  - Alopecia [Unknown]
  - Hirsutism [Unknown]
  - Insomnia [Unknown]
  - Memory impairment [Unknown]
